FAERS Safety Report 5513937-7 (Version None)
Quarter: 2007Q4

REPORT INFORMATION
  Report Type: 
  Country: None (occurrence: None)
  Receive Date: 20071113
  Receipt Date: 20071031
  Transmission Date: 20080405
  Serious: Yes (Life-Threatening, Hospitalization)
  Sender: FDA-Public Use
  Company Number: PL-BRISTOL-MYERS SQUIBB COMPANY-13976907

PATIENT
  Age: 40 Year
  Sex: Male

DRUGS (1)
  1. IFOSFAMIDE [Suspect]
     Indication: LIP NEOPLASM MALIGNANT STAGE UNSPECIFIED
     Route: 042
     Dates: start: 20070828, end: 20070830

REACTIONS (1)
  - DYSKINESIA [None]
